FAERS Safety Report 21125132 (Version 5)
Quarter: 2024Q1

REPORT INFORMATION
  Report Type: Report from Study
  Country: US (occurrence: US)
  Receive Date: 20220725
  Receipt Date: 20240329
  Transmission Date: 20240410
  Serious: Yes (Other)
  Sender: FDA-Public Use
  Company Number: US-TAKEDA-US202021742

PATIENT
  Sex: Female
  Weight: 100 kg

DRUGS (18)
  1. HUMAN IMMUNOGLOBULIN G [Suspect]
     Active Substance: HUMAN IMMUNOGLOBULIN G
     Indication: Primary immunodeficiency syndrome
     Dosage: 10 GRAM, 1/WEEK
     Route: 058
  2. HUMAN IMMUNOGLOBULIN G [Suspect]
     Active Substance: HUMAN IMMUNOGLOBULIN G
     Indication: Hypogammaglobulinaemia
  3. METHOTREXATE [Suspect]
     Active Substance: METHOTREXATE
     Indication: Product used for unknown indication
     Dosage: UNK
     Route: 065
  4. LYRICA [Concomitant]
     Active Substance: PREGABALIN
     Dosage: UNK
  5. CYANOCOBALAMIN KN [Concomitant]
  6. WELLBUTRIN XL [Concomitant]
     Active Substance: BUPROPION HYDROCHLORIDE
  7. LEXAPRO [Concomitant]
     Active Substance: ESCITALOPRAM OXALATE
  8. TRAZODONE HCL [Concomitant]
     Active Substance: TRAZODONE HYDROCHLORIDE
  9. FOLIC ACID ZANZA [Concomitant]
     Dosage: UNK
  10. VITAMIN D3 [Concomitant]
     Active Substance: CHOLECALCIFEROL
  11. IRON [Concomitant]
     Active Substance: IRON
  12. CYCLOBENZAPRINE [Concomitant]
     Active Substance: CYCLOBENZAPRINE
  13. GABAPENTIN [Concomitant]
     Active Substance: GABAPENTIN
  14. AIMOVIG [Concomitant]
     Active Substance: ERENUMAB-AOOE
  15. PLAQUENIL [Concomitant]
     Active Substance: HYDROXYCHLOROQUINE SULFATE
  16. OMEPRAZOLE AN [Concomitant]
  17. NALTREXONE [Concomitant]
     Active Substance: NALTREXONE
  18. HYDROCORTISONE [Concomitant]
     Active Substance: HYDROCORTISONE

REACTIONS (14)
  - Nephrolithiasis [Unknown]
  - Arthritis [Unknown]
  - Multiple allergies [Unknown]
  - Sinusitis [Unknown]
  - Feeling abnormal [Unknown]
  - Injection site abscess [Unknown]
  - COVID-19 [Unknown]
  - Oesophagitis [Unknown]
  - Pain [Unknown]
  - Headache [Recovered/Resolved]
  - Dermatitis contact [Unknown]
  - Infusion site erythema [Unknown]
  - Infusion site swelling [Unknown]
  - Product dose omission issue [Unknown]

NARRATIVE: CASE EVENT DATE: 20200101
